FAERS Safety Report 10395894 (Version 2)
Quarter: 2014Q4

REPORT INFORMATION
  Report Type: Spontaneous
  Country: US (occurrence: US)
  Receive Date: 20140820
  Receipt Date: 20141126
  Transmission Date: 20150528
  Serious: Yes (Congenital Anomaly, Other)
  Sender: FDA-Public Use
  Company Number: US-PFIZER INC-2014229120

PATIENT
  Sex: Male

DRUGS (2)
  1. ZOLOFT [Suspect]
     Active Substance: SERTRALINE HYDROCHLORIDE
     Indication: ANXIETY
     Dosage: UNK
     Route: 064
     Dates: start: 2008, end: 20120820
  2. ZOLOFT [Suspect]
     Active Substance: SERTRALINE HYDROCHLORIDE
     Indication: DEPRESSION

REACTIONS (4)
  - Hypoplastic left heart syndrome [Unknown]
  - Supraventricular tachycardia [Unknown]
  - Maternal exposure during pregnancy [Unknown]
  - Congenital anomaly [Unknown]

NARRATIVE: CASE EVENT DATE: 20081229
